FAERS Safety Report 5167417-1 (Version None)
Quarter: 2006Q4

REPORT INFORMATION
  Report Type: 
  Country: None (occurrence: None)
  Receive Date: 20061130
  Receipt Date: 20061117
  Transmission Date: 20070319
  Serious: Yes (Hospitalization, Congenital Anomaly, Other)
  Sender: FDA-Public Use
  Company Number: 2006128773

PATIENT
  Sex: Female
  Weight: 2.5 kg

DRUGS (5)
  1. HALCION [Suspect]
     Dates: start: 20060622
  2. CLONAZEPAM [Suspect]
  3. LEVOTOMIN (LEVOMEPROMAZINE MALEATE) [Suspect]
  4. MOHRUS (KETOPROFEN) [Concomitant]
  5. CALONAL (PARACETAMOL) [Concomitant]

REACTIONS (5)
  - CAESAREAN SECTION [None]
  - INFANTILE APNOEIC ATTACK [None]
  - MATERNAL DRUGS AFFECTING FOETUS [None]
  - RESPIRATORY DISORDER [None]
  - TRISOMY 21 [None]
